FAERS Safety Report 4422028-8 (Version None)
Quarter: 2004Q3

REPORT INFORMATION
  Report Type: 
  Country: None (occurrence: None)
  Receive Date: 20040805
  Receipt Date: 20040723
  Transmission Date: 20050211
  Serious: Yes (Hospitalization, Disabling)
  Sender: FDA-Public Use
  Company Number: 2004_000064

PATIENT
  Age: 35 Year
  Sex: Female
  Weight: 101.1521 kg

DRUGS (11)
  1. DEPOCYT [Suspect]
     Indication: HUMAN T-CELL LYMPHOTROPIC VIRUS TYPE I INFECTION
     Dosage: 50 MG; INTRATHECAL
     Route: 037
     Dates: end: 20040714
  2. DEPOCYT [Suspect]
     Indication: PROPHYLAXIS
     Dosage: 50 MG; INTRATHECAL
     Route: 037
     Dates: end: 20040714
  3. DOXORUBICIN HCL [Concomitant]
  4. CYCLOPHOSPHAMIDE [Concomitant]
  5. VINCRISTINE [Concomitant]
  6. PREDNISONE [Concomitant]
  7. CIPRO [Concomitant]
  8. ACYCLOVIR [Concomitant]
  9. ANTIFUNGALS FOR SYSTEMIC USE [Concomitant]
  10. BACTRIM DS [Concomitant]
  11. CAFFEINE [Concomitant]

REACTIONS (11)
  - BACK PAIN [None]
  - BONE PAIN [None]
  - CSF LYMPHOCYTE COUNT ABNORMAL [None]
  - CSF NEUTROPHIL COUNT INCREASED [None]
  - DIPLEGIA [None]
  - FAECAL INCONTINENCE [None]
  - HYPOAESTHESIA [None]
  - MENINGITIS [None]
  - NYSTAGMUS [None]
  - PARAESTHESIA [None]
  - URINARY INCONTINENCE [None]
